FAERS Safety Report 23745422 (Version 1)
Quarter: 2024Q2

REPORT INFORMATION
  Report Type: Spontaneous
  Country: IN (occurrence: IN)
  Receive Date: 20240416
  Receipt Date: 20240416
  Transmission Date: 20240716
  Serious: Yes (Other)
  Sender: FDA-Public Use
  Company Number: IN-SERVIER-S24004033

PATIENT
  Age: 42 Year
  Sex: Male

DRUGS (3)
  1. IVABRADINE [Suspect]
     Active Substance: IVABRADINE
     Indication: Tachycardia
     Dosage: 5 MILLIGRAM, QD (2.5 MG TWICE A DAY)
     Route: 065
  2. CLOZAPINE [Concomitant]
     Active Substance: CLOZAPINE
     Indication: Schizophrenia
     Dosage: 200 MILLIGRAM, QD (DISCHARGED ON CLOZAPINE 200 MG/DAY)
     Route: 065
  3. CLOZAPINE [Concomitant]
     Active Substance: CLOZAPINE
     Dosage: 150 MILLIGRAM, QD (150 MG/DAY OVER A FEW WEEKS)
     Route: 065

REACTIONS (1)
  - Delirium [Recovered/Resolved]
